FAERS Safety Report 4734091-5 (Version None)
Quarter: 2005Q3

REPORT INFORMATION
  Report Type: 
  Country: None (occurrence: None)
  Receive Date: 20050803
  Receipt Date: 20050803
  Transmission Date: 20060218
  Serious: Yes (Other)
  Sender: FDA-Public Use
  Company Number: None

PATIENT
  Age: 89 Year
  Sex: Female

DRUGS (1)
  1. FLUDARABINE BERLEX [Suspect]
     Indication: NON-HODGKIN'S LYMPHOMA
     Dosage: 40MG X5DAYS Q MONTH INTRAVENOUS
     Route: 042
     Dates: start: 20050101, end: 20050422

REACTIONS (2)
  - BLINDNESS TRANSIENT [None]
  - BLINDNESS UNILATERAL [None]
